FAERS Safety Report 4502532-4 (Version None)
Quarter: 2004Q4

REPORT INFORMATION
  Report Type: 
  Country: None (occurrence: None)
  Receive Date: 20041112
  Receipt Date: 20041029
  Transmission Date: 20050328
  Serious: Yes (Hospitalization)
  Sender: FDA-Public Use
  Company Number: 2004-BP-10980AU

PATIENT
  Sex: Female

DRUGS (2)
  1. MICARDIS [Suspect]
     Dosage: PO
     Route: 048
  2. MOBIC [Suspect]

REACTIONS (1)
  - HYPERCALCAEMIA [None]
